FAERS Safety Report 9012279 (Version 1)
Quarter: 2013Q1

REPORT INFORMATION
  Report Type: Spontaneous
  Country: US (occurrence: US)
  Receive Date: 20130114
  Receipt Date: 20130114
  Transmission Date: 20140127
  Serious: Yes (Other)
  Sender: FDA-Public Use
  Company Number: US-009507513-1301USA003426

PATIENT
  Age: 46 Year
  Sex: Female

DRUGS (7)
  1. MONTELUKAST SODIUM [Suspect]
     Indication: ASTHMA
     Route: 065
  2. PREDNISONE [Suspect]
     Dosage: 8 MG, QD
     Route: 065
  3. PREDNISONE [Suspect]
     Dosage: UNK
     Route: 065
  4. FLUTICASONE PROPIONATE (+) SALMETEROL XINAFOATE [Concomitant]
  5. SPIRONOLACTONE [Concomitant]
  6. DIGOXIN [Concomitant]
  7. TORSEMIDE [Concomitant]

REACTIONS (4)
  - Sinus tachycardia [Unknown]
  - Withdrawal syndrome [Unknown]
  - Haemolytic anaemia [Unknown]
  - Eosinophilic myocarditis [Unknown]
